FAERS Safety Report 9478463 (Version 3)
Quarter: 2013Q4

REPORT INFORMATION
  Report Type: Report from Study
  Country: PT (occurrence: PT)
  Receive Date: 20130827
  Receipt Date: 20131231
  Transmission Date: 20140711
  Serious: Yes (Death, Hospitalization)
  Sender: FDA-Public Use
  Company Number: PT-PFIZER INC-2013242841

PATIENT
  Age: 67 Year
  Sex: Female
  Weight: 57.6 kg

DRUGS (8)
  1. FLUOROURACIL [Suspect]
     Indication: COLORECTAL CANCER METASTATIC
     Dosage: 400 MG/M2, BOLUS ON DAY ONE EVERY 14 DAYS FOLLOWED BY 2400MG/M2 ON DAYS ONE AND TWO
     Route: 040
     Dates: start: 20130403, end: 20130711
  2. FLUOROURACIL [Suspect]
     Dosage: 2400 MG/M2 (ON DAYS ONE AND TWO)
     Route: 042
     Dates: start: 20130403, end: 20130711
  3. IRINOTECAN HCL [Suspect]
     Indication: COLORECTAL CANCER METASTATIC
     Dosage: 180 MG/M2, ON DAY ONE EVERY 14 DAYS
     Route: 042
     Dates: start: 20130403, end: 20130711
  4. FOLINIC ACID [Suspect]
     Indication: COLORECTAL CANCER METASTATIC
     Dosage: 400 MG/M2, ON DAY ONE EVERY 14 DAYS
     Route: 042
     Dates: start: 20130403, end: 20130711
  5. BLINDED THERAPY [Suspect]
     Indication: COLORECTAL CANCER METASTATIC
     Dosage: EVERY 14 DAYS
     Route: 042
     Dates: start: 20130403, end: 20130711
  6. TRAMADOL [Concomitant]
     Indication: ANALGESIC THERAPY
     Dosage: UNK
     Dates: start: 20130711
  7. PARACETAMOL [Concomitant]
     Indication: ANALGESIC THERAPY
     Dosage: UNK
     Dates: start: 20130626
  8. LOPERAMIDE [Concomitant]
     Indication: CONSTIPATION
     Dosage: UNK
     Dates: start: 20130721, end: 20130801

REACTIONS (5)
  - Systemic inflammatory response syndrome [Fatal]
  - Pelvic abscess [Not Recovered/Not Resolved]
  - Sepsis [Fatal]
  - Pelvic pain [Recovered/Resolved]
  - Diarrhoea [Recovered/Resolved]
